FAERS Safety Report 6564775-8 (Version None)
Quarter: 2010Q1

REPORT INFORMATION
  Report Type: 
  Country: None (occurrence: None)
  Receive Date: 20100201
  Receipt Date: 20100121
  Transmission Date: 20100710
  Serious: Yes (Other)
  Sender: FDA-Public Use
  Company Number: DE-JNJFOC-20091008696

PATIENT
  Sex: Male
  Weight: 120 kg

DRUGS (3)
  1. STELARA [Suspect]
     Indication: PSORIASIS
     Route: 058
     Dates: start: 20090303
  2. DAIVOBET [Concomitant]
     Dates: start: 20090101
  3. CIGNOLIN [Concomitant]
     Dates: start: 20090101

REACTIONS (2)
  - IMPAIRED HEALING [None]
  - OSTEOMYELITIS [None]
